FAERS Safety Report 25947965 (Version 2)
Quarter: 2025Q4

REPORT INFORMATION
  Report Type: Other
  Country: EU (occurrence: EU)
  Receive Date: 20251022
  Receipt Date: 20251107
  Transmission Date: 20260119
  Serious: Yes (Hospitalization)
  Sender: Atnahs Healthcare
  Company Number: None

PATIENT

DRUGS (1)
  1. VALIUM [Suspect]
     Active Substance: DIAZEPAM
     Indication: Incorrect dose administered
     Dosage: 10 MG X 2 AT 10 MINUTE INTERVALS (INSTEAD OF 5 MG X 2 AT 20 MINUTE INTERVALS)
     Route: 054
     Dates: start: 20250909, end: 20250909

REACTIONS (2)
  - Wrong strength [Recovered/Resolved]
  - Coma [Recovered/Resolved]

NARRATIVE: CASE EVENT DATE: 20250909
